FAERS Safety Report 19681845 (Version 2)
Quarter: 2021Q3

REPORT INFORMATION
  Report Type: Spontaneous
  Country: IT (occurrence: IT)
  Receive Date: 20210810
  Receipt Date: 20210812
  Transmission Date: 20211014
  Serious: Yes (Other)
  Sender: FDA-Public Use
  Company Number: IT-SA-2021SA260839

PATIENT
  Age: 19 Year
  Sex: Female

DRUGS (4)
  1. ZOLPIDEM TARTRATE. [Suspect]
     Active Substance: ZOLPIDEM TARTRATE
     Indication: DRUG ABUSE
     Dosage: 1 DF, TOTAL
     Route: 048
     Dates: start: 20210620, end: 20210620
  2. LORAZEPAM. [Suspect]
     Active Substance: LORAZEPAM
     Indication: DRUG ABUSE
     Dosage: 40 GTT DROPS, TOTAL
     Route: 048
     Dates: start: 20210620, end: 20210620
  3. QUETIAPINE FUMARATE. [Concomitant]
     Active Substance: QUETIAPINE FUMARATE
  4. VALDORM [FLURAZEPAM HYDROCHLORIDE] [Concomitant]
     Active Substance: FLURAZEPAM HYDROCHLORIDE

REACTIONS (5)
  - Vomiting [Recovering/Resolving]
  - Alcohol abuse [Unknown]
  - Presyncope [Recovering/Resolving]
  - Sinus tachycardia [Recovering/Resolving]
  - Drug abuse [Unknown]

NARRATIVE: CASE EVENT DATE: 20210620
